FAERS Safety Report 12462657 (Version 1)
Quarter: 2016Q2

REPORT INFORMATION
  Report Type: Report from Study
  Country: US (occurrence: US)
  Receive Date: 20160614
  Receipt Date: 20160614
  Transmission Date: 20160815
  Serious: No
  Sender: FDA-Public Use
  Company Number: US-AMGEN-USASL2016073713

PATIENT
  Age: 54 Year
  Sex: Female

DRUGS (1)
  1. ENBREL [Suspect]
     Active Substance: ETANERCEPT
     Indication: PRODUCT USED FOR UNKNOWN INDICATION
     Dosage: UNK
     Route: 065

REACTIONS (6)
  - Pallor [Unknown]
  - Injection site warmth [Recovered/Resolved]
  - Fatigue [Unknown]
  - Injection site discomfort [Recovered/Resolved]
  - Dizziness [Unknown]
  - Injection site swelling [Recovered/Resolved]
